FAERS Safety Report 15962366 (Version 1)
Quarter: 2019Q1

REPORT INFORMATION
  Report Type: Report from Study
  Country: DE (occurrence: DE)
  Receive Date: 20190214
  Receipt Date: 20190214
  Transmission Date: 20190417
  Serious: Yes (Life-Threatening, Hospitalization, Other)
  Sender: FDA-Public Use
  Company Number: DE-PFIZER INC-2019065745

PATIENT
  Age: 36 Year
  Sex: Male
  Weight: 76 kg

DRUGS (12)
  1. ANTRA [OMEPRAZOLE] [Suspect]
     Active Substance: OMEPRAZOLE
     Indication: OESOPHAGITIS
     Dosage: 1 DF, 1X/DAY
     Route: 048
  2. TEGRETAL RETARD [Suspect]
     Active Substance: CARBAMAZEPINE
     Indication: SEIZURE
     Dosage: 200 MG, BID
     Route: 048
     Dates: start: 19990401, end: 19990425
  3. AMPICILLIN [Suspect]
     Active Substance: AMPICILLIN
     Indication: PYREXIA
     Dosage: UNKNOWN
     Route: 048
     Dates: start: 19990409, end: 19990409
  4. TRANXILIUM [Suspect]
     Active Substance: CLORAZEPATE DIPOTASSIUM
     Indication: SEDATION
     Route: 048
     Dates: start: 19990409, end: 19990425
  5. UNACID (AMPICILLIN SODIUM\SULBACTAM SODIUM) [Suspect]
     Active Substance: AMPICILLIN SODIUM\SULBACTAM SODIUM
     Dosage: SOLUTION FOR INJECTION
     Route: 042
     Dates: start: 19990427, end: 19990429
  6. TAVEGIL [CLEMASTINE FUMARATE] [Concomitant]
     Indication: DERMATITIS
     Dosage: 1 DF, BID
     Route: 048
     Dates: start: 19990425
  7. UNACID (AMPICILLIN SODIUM\SULBACTAM SODIUM) [Suspect]
     Active Substance: AMPICILLIN SODIUM\SULBACTAM SODIUM
     Indication: URINARY TRACT INFECTION
     Dosage: SOLUTION FOR INJECTION
     Route: 042
     Dates: start: 19990409, end: 19990409
  8. BELOC [METOPROLOL TARTRATE] [Suspect]
     Active Substance: METOPROLOL TARTRATE
     Indication: HYPERTENSION
     Dosage: 1 DF, QD
     Route: 048
  9. BAYPEN [Suspect]
     Active Substance: MEZLOCILLIN SODIUM
     Dosage: UNKNOWN
     Route: 042
     Dates: start: 19990424, end: 19990425
  10. CLONT [METRONIDAZOLE] [Concomitant]
     Indication: URINARY TRACT INFECTION
     Dosage: UNKNOWN
     Route: 042
     Dates: start: 19990427, end: 19990429
  11. MILGAMMA [BENFOTIAMINE;CYANOCOBALAMIN] [Suspect]
     Active Substance: BENFOTIAMINE\CYANOCOBALAMIN
     Indication: RESTLESSNESS
     Dosage: 1 DF, DAILY
     Route: 048
     Dates: end: 19990425
  12. TARIVID (OFLOXACIN) [Suspect]
     Active Substance: OFLOXACIN
     Indication: PYREXIA
     Dosage: UNKNOWN
     Route: 042
     Dates: start: 19990425, end: 19990426

REACTIONS (8)
  - Pyrexia [Unknown]
  - Stevens-Johnson syndrome [Unknown]
  - Blister [Unknown]
  - Rash [Unknown]
  - Erythema [Unknown]
  - Lip swelling [Unknown]
  - Toxic epidermal necrolysis [Unknown]
  - Pruritus [Unknown]

NARRATIVE: CASE EVENT DATE: 19990425
